FAERS Safety Report 7417630-5 (Version None)
Quarter: 2011Q2

REPORT INFORMATION
  Report Type: 
  Country: None (occurrence: None)
  Receive Date: 20110415
  Receipt Date: 20110413
  Transmission Date: 20111010
  Serious: Yes (Death)
  Sender: FDA-Public Use
  Company Number: CN-GENZYME-FLUD-1000375

PATIENT
  Sex: Female
  Weight: 46 kg

DRUGS (12)
  1. CYTARABINE [Suspect]
     Indication: ACUTE MYELOID LEUKAEMIA
     Dosage: 1.5 G/M2, UNK
     Route: 065
     Dates: start: 20100518, end: 20100523
  2. FLUDARA [Suspect]
     Indication: ACUTE MYELOID LEUKAEMIA
     Dosage: 30 MG/M2, QD
     Route: 042
     Dates: start: 20100518, end: 20100523
  3. TIENAM [Concomitant]
     Indication: INFECTION
     Dosage: UNK
     Route: 065
  4. CEFOPERAZONE SODIUM [Concomitant]
     Indication: INFECTION
     Dosage: UNK
     Route: 065
  5. 5-HT3 BLOCKER [Concomitant]
     Dosage: UNK
     Route: 065
  6. AVELOX [Concomitant]
     Indication: INFECTION
     Dosage: UNK
     Route: 065
  7. VANCOMYCIN HCL [Concomitant]
     Indication: INFECTION
     Dosage: UNK
     Route: 065
  8. ALBUMIN (HUMAN) [Concomitant]
     Indication: PRODUCT USED FOR UNKNOWN INDICATION
     Dosage: UNK
     Route: 065
  9. BUSULFAN [Suspect]
     Indication: ACUTE MYELOID LEUKAEMIA
     Dosage: 0.8 MG/M2, UNK
     Route: 065
     Dates: start: 20100523, end: 20100525
  10. SULBACTAM SODIUM [Concomitant]
     Indication: INFECTION
     Dosage: UNK
     Route: 065
  11. MEROPENEM [Concomitant]
     Indication: INFECTION
     Dosage: UNK
     Route: 065
  12. CASPOFUNGIN ACETATE [Concomitant]
     Indication: INFECTION
     Dosage: UNK
     Route: 065

REACTIONS (2)
  - INFECTION [None]
  - VENOOCCLUSIVE LIVER DISEASE [None]
